FAERS Safety Report 8271875-3 (Version None)
Quarter: 2012Q1

REPORT INFORMATION
  Report Type: 
  Country: None (occurrence: None)
  Receive Date: 20120308
  Receipt Date: 20111111
  Transmission Date: 20120608
  Serious: No
  Sender: FDA-Public Use
  Company Number: PHEH2011US009373

PATIENT
  Age: 45 Year
  Sex: Male
  Weight: 136.1 kg

DRUGS (1)
  1. FANAPT [Suspect]
     Dosage: 16 MG, QD, ORAL
     Route: 048

REACTIONS (2)
  - DYSGEUSIA [None]
  - PAROSMIA [None]
